FAERS Safety Report 7690401-0 (Version None)
Quarter: 2011Q3

REPORT INFORMATION
  Report Type: 
  Country: None (occurrence: None)
  Receive Date: 20110812
  Receipt Date: 20110802
  Transmission Date: 20111222
  Serious: No
  Sender: FDA-Public Use
  Company Number: SPI201100216

PATIENT
  Age: 26 Year
  Sex: Female

DRUGS (3)
  1. AMITIZA [Suspect]
     Indication: CONSTIPATION
     Dosage: 24 MCG, BID, ORAL
     Route: 048
     Dates: start: 20110705
  2. METAMUCIL-2 [Concomitant]
  3. FIBER-LAX (POLYCARBOPHIL CALCIUM) [Concomitant]

REACTIONS (3)
  - NAUSEA [None]
  - DYSPNOEA [None]
  - COUGH [None]
